FAERS Safety Report 7342663-7 (Version None)
Quarter: 2011Q1

REPORT INFORMATION
  Report Type: 
  Country: None (occurrence: None)
  Receive Date: 20110310
  Receipt Date: 20110228
  Transmission Date: 20110831
  Serious: Yes (Death)
  Sender: FDA-Public Use
  Company Number: US-CELGENEUS-163-21880-11030228

PATIENT
  Sex: Male

DRUGS (14)
  1. ASPIRIN [Concomitant]
     Route: 065
  2. COREG [Concomitant]
     Route: 065
  3. COUMADIN [Concomitant]
     Route: 065
  4. ASTELIN [Concomitant]
     Route: 065
  5. REVLIMID [Suspect]
     Indication: MULTIPLE MYELOMA
     Dosage: 10 MILLIGRAM
     Route: 048
     Dates: start: 20101101
  6. ASCORBIC ACID [Concomitant]
     Route: 065
  7. REVLIMID [Suspect]
     Dosage: 5 MILLIGRAM
     Route: 048
     Dates: start: 20110101, end: 20110101
  8. HYDROCHLOROTHIAZIDE AND TRIAMTERENE [Concomitant]
     Route: 065
  9. FOLIC ACID [Concomitant]
     Route: 065
  10. LASIX [Concomitant]
     Route: 065
  11. LISINOPRIL [Concomitant]
     Route: 065
  12. NIACIN [Concomitant]
     Route: 065
  13. VITAMIN B COMPLEX CAP [Concomitant]
     Route: 065
  14. UROXATRAL [Concomitant]
     Route: 065

REACTIONS (1)
  - DEATH [None]
